FAERS Safety Report 6642835-0 (Version None)
Quarter: 2010Q1

REPORT INFORMATION
  Report Type: 
  Country: None (occurrence: None)
  Receive Date: 20100319
  Receipt Date: 20100305
  Transmission Date: 20100710
  Serious: Yes (Hospitalization)
  Sender: FDA-Public Use
  Company Number: US-ELI_LILLY_AND_COMPANY-US200911003885

PATIENT
  Sex: Female

DRUGS (9)
  1. FORTEO [Suspect]
     Indication: OSTEOPOROSIS
     Dosage: 20 UG, DAILY (1/D)
     Dates: start: 20090301
  2. FORTEO [Suspect]
     Dosage: 20 UG, DAILY (1/D)
  3. PEPTOBISMOL [Concomitant]
  4. CALCIUM [Concomitant]
  5. ANALGESICS [Concomitant]
  6. SYNTHROID [Concomitant]
  7. VITAMINS [Concomitant]
  8. NEURONTIN [Concomitant]
  9. BACLOFEN [Concomitant]

REACTIONS (8)
  - ABDOMINAL PAIN UPPER [None]
  - EATING DISORDER SYMPTOM [None]
  - GALLBLADDER DISORDER [None]
  - GASTROINTESTINAL DISORDER [None]
  - MALAISE [None]
  - NAUSEA [None]
  - ULCER [None]
  - VOMITING [None]
